FAERS Safety Report 16913689 (Version 1)
Quarter: 2019Q4

REPORT INFORMATION
  Report Type: Spontaneous
  Country: ZA (occurrence: ZA)
  Receive Date: 20191014
  Receipt Date: 20191014
  Transmission Date: 20200122
  Serious: Yes (Hospitalization)
  Sender: FDA-Public Use
  Company Number: ZA-NOVOPROD-689597

PATIENT
  Age: 56 Year
  Sex: Female

DRUGS (1)
  1. ESTROFEM (ESTRADIOL HEMIHYDRATE) [Suspect]
     Active Substance: ESTRADIOL HEMIHYDRATE
     Indication: HORMONE REPLACEMENT THERAPY
     Dosage: 1 MG, SINGLE
     Route: 048

REACTIONS (2)
  - Hernia [Recovered/Resolved]
  - Disease recurrence [Recovered/Resolved]
